FAERS Safety Report 4422091-4 (Version None)
Quarter: 2004Q3

REPORT INFORMATION
  Report Type: 
  Country: None (occurrence: None)
  Receive Date: 20040712
  Receipt Date: 20040317
  Transmission Date: 20050211
  Serious: No
  Sender: FDA-Public Use
  Company Number: TAP2004Q00345

PATIENT
  Sex: Male

DRUGS (2)
  1. PREVACID [Suspect]
     Indication: GASTROOESOPHAGEAL REFLUX DISEASE
     Dosage: 30 MG, ONCE, PER ORAL
     Route: 048
     Dates: start: 20040306, end: 20040306
  2. EXCEDRIN (THOMAPYRIN N) [Concomitant]

REACTIONS (14)
  - ASTHENIA [None]
  - DYSKINESIA [None]
  - ERYTHEMA [None]
  - EYE IRRITATION [None]
  - EYE REDNESS [None]
  - HEART RATE INCREASED [None]
  - HYPERSENSITIVITY [None]
  - HYPOTENSION [None]
  - NAUSEA [None]
  - OEDEMA PERIPHERAL [None]
  - PARAESTHESIA [None]
  - PRURITUS [None]
  - RASH PRURITIC [None]
  - VISION BLURRED [None]
